FAERS Safety Report 20371041 (Version 2)
Quarter: 2022Q1

REPORT INFORMATION
  Report Type: Spontaneous
  Country: US (occurrence: None)
  Receive Date: 20220124
  Receipt Date: 20220325
  Transmission Date: 20220423
  Serious: Yes (Other)
  Sender: FDA-Public Use
  Company Number: US-ROCHE-3002070

PATIENT
  Sex: Male

DRUGS (2)
  1. ACTEMRA [Suspect]
     Active Substance: TOCILIZUMAB
     Indication: Systemic sclerosis pulmonary
     Dosage: 162 MG WEEKLY UNDER SKIN
     Route: 058
     Dates: start: 20220112
  2. ACTEMRA [Suspect]
     Active Substance: TOCILIZUMAB

REACTIONS (3)
  - Rectal haemorrhage [Unknown]
  - Gastrointestinal injury [Unknown]
  - Blood urine present [Unknown]
